FAERS Safety Report 16807136 (Version 6)
Quarter: 2021Q3

REPORT INFORMATION
  Report Type: Report from Study
  Country: FR (occurrence: FR)
  Receive Date: 20190913
  Receipt Date: 20210722
  Transmission Date: 20211014
  Serious: Yes (Death, Hospitalization, Other)
  Sender: FDA-Public Use
  Company Number: FR-JAZZ-2019-FR-012740

PATIENT

DRUGS (2)
  1. DEFITELIO [Suspect]
     Active Substance: DEFIBROTIDE SODIUM
     Dosage: 25 MG/KG/DAY
     Route: 042
     Dates: start: 20160404, end: 20160413
  2. DEFITELIO [Suspect]
     Active Substance: DEFIBROTIDE SODIUM
     Indication: PROPHYLAXIS
     Dosage: 25 MG/KG/DAY
     Route: 042
     Dates: start: 20140613, end: 20140613

REACTIONS (6)
  - Acute lymphocytic leukaemia [Fatal]
  - Disease progression [Fatal]
  - Acute respiratory distress syndrome [Recovered/Resolved]
  - Disseminated intravascular coagulation [Recovered/Resolved]
  - Off label use [Unknown]
  - Pulmonary alveolar haemorrhage [Recovered/Resolved]

NARRATIVE: CASE EVENT DATE: 20140618
